FAERS Safety Report 8934741 (Version 1)
Quarter: 2012Q4

REPORT INFORMATION
  Report Type: 
  Country: US (occurrence: US)
  Receive Date: 20121129
  Receipt Date: 20121129
  Transmission Date: 20130627
  Serious: Yes (Hospitalization, Other)
  Sender: FDA-Public Use
  Company Number: CHPA2012US015646

PATIENT
  Age: 69 Year
  Sex: Female

DRUGS (3)
  1. THERAFLU VAPOR PATCH [Suspect]
     Indication: COUGH
     Dosage: One patch, Unk
     Dates: start: 2002
  2. THERAFLU VAPOR PATCH [Suspect]
     Dosage: Half a patch, Unk
     Dates: start: 2002
  3. ALBUTEROL [Concomitant]
     Indication: ASTHMA

REACTIONS (5)
  - Pneumonia [Recovered/Resolved]
  - Emphysema [Not Recovered/Not Resolved]
  - Chronic obstructive pulmonary disease [Not Recovered/Not Resolved]
  - Therapeutic response unexpected [Unknown]
  - Wrong technique in drug usage process [Unknown]
